FAERS Safety Report 13639329 (Version 1)
Quarter: 2017Q2

REPORT INFORMATION
  Report Type: Spontaneous
  Country: US (occurrence: US)
  Receive Date: 20170609
  Receipt Date: 20170609
  Transmission Date: 20170830
  Serious: No
  Sender: FDA-Public Use
  Company Number: US-ROCHE-1428232

PATIENT
  Age: 66 Year
  Sex: Female

DRUGS (4)
  1. LISINOPRIL. [Concomitant]
     Active Substance: LISINOPRIL
     Indication: HYPERTENSION
  2. KLONOPIN [Suspect]
     Active Substance: CLONAZEPAM
     Indication: TIC
     Dosage: TAKE IN MORNING
     Route: 048
  3. KLONOPIN [Suspect]
     Active Substance: CLONAZEPAM
     Indication: MUSCLE DISORDER
  4. KLONOPIN [Suspect]
     Active Substance: CLONAZEPAM
     Indication: INTENTION TREMOR
     Dosage: TAKE AT NIGHT
     Route: 048

REACTIONS (3)
  - Coordination abnormal [Not Recovered/Not Resolved]
  - Cough [Not Recovered/Not Resolved]
  - Tic [Not Recovered/Not Resolved]

NARRATIVE: CASE EVENT DATE: 201406
